FAERS Safety Report 9054389 (Version 1)
Quarter: 2013Q1

REPORT INFORMATION
  Report Type: Spontaneous
  Country: US (occurrence: US)
  Receive Date: 20130208
  Receipt Date: 20130208
  Transmission Date: 20140127
  Serious: No
  Sender: FDA-Public Use
  Company Number: US-GLAXOSMITHKLINE-A0977868A

PATIENT
  Age: 62 Year
  Sex: Female

DRUGS (6)
  1. PAXIL CR [Suspect]
     Indication: STRESS
     Dosage: 25MG PER DAY
     Route: 048
     Dates: start: 20120509
  2. CYMBALTA [Suspect]
     Indication: STRESS
     Dosage: 60MG PER DAY
     Route: 048
     Dates: end: 20120509
  3. CLONIDINE [Concomitant]
  4. HYDROCHLOROTHIAZIDE [Concomitant]
  5. TRAZODONE HCL [Concomitant]
  6. PREMPRO [Concomitant]

REACTIONS (5)
  - Feeling abnormal [Recovering/Resolving]
  - Mental impairment [Unknown]
  - Communication disorder [Unknown]
  - Mental impairment [Unknown]
  - Somnolence [Unknown]
